FAERS Safety Report 7098327-0 (Version None)
Quarter: 2010Q4

REPORT INFORMATION
  Report Type: 
  Country: None (occurrence: None)
  Receive Date: 20101112
  Receipt Date: 20101104
  Transmission Date: 20110411
  Serious: No
  Sender: FDA-Public Use
  Company Number: US-PFIZER INC-2010142727

PATIENT

DRUGS (2)
  1. ZYVOX [Suspect]
     Dosage: UNK
     Dates: end: 20101103
  2. TRAZODONE HCL [Suspect]

REACTIONS (3)
  - ANXIETY [None]
  - DRUG WITHDRAWAL SYNDROME [None]
  - INSOMNIA [None]
